FAERS Safety Report 16306222 (Version 3)
Quarter: 2019Q3

REPORT INFORMATION
  Report Type: Spontaneous
  Country: FR (occurrence: FR)
  Receive Date: 20190513
  Receipt Date: 20190712
  Transmission Date: 20191004
  Serious: Yes (Hospitalization)
  Sender: FDA-Public Use
  Company Number: FR-MYLANLABS-2019M1044321

PATIENT
  Age: 76 Year
  Sex: Female
  Weight: 60 kg

DRUGS (21)
  1. CISATRACURIUM MYLAN [Suspect]
     Active Substance: CISATRACURIUM
     Indication: GENERAL ANAESTHESIA
     Dosage: 14 MILLIGRAM, QD
     Route: 042
     Dates: start: 20181102, end: 20181102
  2. PROPOFOL MYLAN [Suspect]
     Active Substance: PROPOFOL
     Indication: GENERAL ANAESTHESIA
     Dosage: 320 MILLIGRAM, QD
     Route: 042
     Dates: start: 20181102, end: 20181102
  3. PARACETAMOL [Suspect]
     Active Substance: ACETAMINOPHEN
     Indication: ANALGESIC INTERVENTION SUPPORTIVE THERAPY
     Dosage: 4 GRAM, QD
     Route: 042
     Dates: start: 20181102, end: 20181103
  4. SUFENTANIL MYLAN [Suspect]
     Active Substance: SUFENTANIL
     Indication: GENERAL ANAESTHESIA
     Dosage: 50 MICROGRAM, QD
     Route: 042
     Dates: start: 20181102, end: 20181102
  5. MIDAZOLAM [Suspect]
     Active Substance: MIDAZOLAM HYDROCHLORIDE
     Indication: GENERAL ANAESTHESIA
     Dosage: 1 MILLIGRAM, QD
     Route: 042
     Dates: start: 20181102, end: 20181102
  6. LOVENOX [Suspect]
     Active Substance: ENOXAPARIN SODIUM
     Indication: ANTICOAGULANT THERAPY
     Dosage: 4000 INTERNATIONAL UNIT, QD
     Route: 058
     Dates: start: 20181102
  7. CHIROCAINE [Suspect]
     Active Substance: LEVOBUPIVACAINE HYDROCHLORIDE
     Indication: GENERAL ANAESTHESIA
     Dosage: 50 MILLIGRAM, QD
     Route: 042
     Dates: start: 20181102, end: 20181102
  8. POLYIONIQUE FORMULE 1A G5 [Suspect]
     Active Substance: DEXTROSE\POTASSIUM CHLORIDE\SODIUM CHLORIDE
     Indication: FLUID REPLACEMENT
     Dosage: 1 DOSAGE FORM, QD
     Route: 042
     Dates: start: 20181103, end: 20181103
  9. DEXAMETHASONE MYLAN [Suspect]
     Active Substance: DEXAMETHASONE
     Indication: GENERAL ANAESTHESIA
     Dosage: 8 MILLIGRAM, QD
     Route: 042
     Dates: start: 20181102, end: 20181102
  10. EPHEDRINE AGUETTANT [Suspect]
     Active Substance: EPHEDRINE
     Indication: GENERAL ANAESTHESIA
     Dosage: 6 MILLIGRAM, QD
     Route: 042
     Dates: start: 20181102, end: 20181102
  11. EXACYL [Suspect]
     Active Substance: TRANEXAMIC ACID
     Indication: HAEMORRHAGE PROPHYLAXIS
     Dosage: 2 GRAM, QD (1 G/10 ML)
     Route: 048
     Dates: start: 20181103, end: 20181103
  12. CEFAZOLINE MYLAN 1 G POUDRE POUR SOLUTION INJECTABLE OU POUR PERFUSION [Suspect]
     Active Substance: CEFAZOLIN SODIUM
     Indication: ANTIBIOTIC PROPHYLAXIS
     Dosage: 4 GRAM, QD
     Route: 042
     Dates: start: 20181102, end: 20181102
  13. PARACETAMOL [Suspect]
     Active Substance: ACETAMINOPHEN
     Indication: ANALGESIC INTERVENTION SUPPORTIVE THERAPY
     Dosage: 4 GRAM, QD SI BESOIN
     Route: 048
     Dates: start: 20181103
  14. KETAMINE RENAUDIN [Suspect]
     Active Substance: KETAMINE
     Indication: GENERAL ANAESTHESIA
     Dosage: 20 MILLIGRAM, QD
     Route: 042
     Dates: start: 20181102, end: 20181102
  15. MIVACRON [Suspect]
     Active Substance: MIVACURIUM CHLORIDE
     Indication: GENERAL ANAESTHESIA
     Dosage: 14 MILLIGRAM, QD
     Route: 042
     Dates: start: 20181102, end: 20181102
  16. LANSOPRAZOLE MYLAN 30 MG, COMPRIM? ORODISPERSIBLE [Suspect]
     Active Substance: LANSOPRAZOLE
     Indication: PROPHYLAXIS AGAINST GASTROINTESTINAL ULCER
     Dosage: 30 MILLIGRAM, QD
     Route: 048
     Dates: start: 20181102, end: 20181114
  17. DROPERIDOL AGUETTANT [Suspect]
     Active Substance: DROPERIDOL
     Indication: GENERAL ANAESTHESIA
     Dosage: 0.6 MILLIGRAM, QD
     Route: 042
     Dates: start: 20181102, end: 20181102
  18. VENOFER [Suspect]
     Active Substance: IRON SUCROSE
     Indication: ANAEMIA PROPHYLAXIS
     Dosage: 300 MILLIGRAM, QD
     Route: 042
     Dates: start: 20181103, end: 20181103
  19. KETOPROFENE MEDAC [Suspect]
     Active Substance: KETOPROFEN
     Indication: ANTIINFLAMMATORY THERAPY
     Dosage: 200 MILLIGRAM, QD (100 MG/4 ML)
     Route: 042
     Dates: start: 20181103, end: 20181103
  20. NEFOPAM MEDISOL [Suspect]
     Active Substance: NEFOPAM HYDROCHLORIDE
     Indication: ANALGESIC INTERVENTION SUPPORTIVE THERAPY
     Dosage: 80 MILLIGRAM, QD SI BESOIN
     Route: 048
     Dates: start: 20181103, end: 20181104
  21. MOVICOL [Suspect]
     Active Substance: POLYETHYLENE GLYCOL 3350\POTASSIUM CHLORIDE\SODIUM BICARBONATE\SODIUM CHLORIDE
     Indication: LAXATIVE SUPPORTIVE CARE
     Dosage: 1 DOSAGE FORM, QD
     Route: 048
     Dates: start: 20181111

REACTIONS (1)
  - Acute generalised exanthematous pustulosis [Recovered/Resolved]

NARRATIVE: CASE EVENT DATE: 20181114
